FAERS Safety Report 15239240 (Version 2)
Quarter: 2018Q3

REPORT INFORMATION
  Report Type: Report from Study
  Country: JP (occurrence: JP)
  Receive Date: 20180803
  Receipt Date: 20180817
  Transmission Date: 20181010
  Serious: Yes (Hospitalization)
  Sender: FDA-Public Use
  Company Number: JP-PFIZER INC-2018276009

PATIENT
  Age: 60 Year
  Sex: Male
  Weight: 59.5 kg

DRUGS (7)
  1. AXITINIB [Suspect]
     Active Substance: AXITINIB
     Indication: RENAL CELL CARCINOMA
     Dosage: 5 MG, 2X/DAY
     Route: 048
     Dates: start: 20170622
  2. HEPARINOID [Concomitant]
     Active Substance: CHONDROITIN SULFATE (BOVINE)
     Indication: PALMAR-PLANTAR ERYTHRODYSAESTHESIA SYNDROME
     Dosage: G, AS NEEDED
     Route: 061
  3. POLAPREZINC [Concomitant]
     Active Substance: POLAPREZINC
     Indication: DYSGEUSIA
     Dosage: 75 MG, 2X/DAY
     Route: 048
     Dates: start: 20180201, end: 20180707
  4. AVELUMAB [Suspect]
     Active Substance: AVELUMAB
     Indication: RENAL CELL CARCINOMA
     Dosage: 600 MG, EVERY 2 WEEKS
     Route: 042
     Dates: start: 20170622
  5. TELMISARTAN. [Concomitant]
     Active Substance: TELMISARTAN
     Indication: HYPERTENSION
     Dosage: 20 MG, 1X/DAY
     Route: 048
     Dates: start: 2018
  6. FEBUXOSTAT. [Concomitant]
     Active Substance: FEBUXOSTAT
     Indication: GOUT
     Dosage: 20 MG, 1X/DAY
     Route: 048
     Dates: start: 20171116
  7. NAFTOPIDIL [Concomitant]
     Active Substance: NAFTOPIDIL
     Indication: GOUT
     Dosage: 50 MG, 1X/DAY
     Route: 048
     Dates: start: 201604

REACTIONS (1)
  - Intussusception [Recovered/Resolved]

NARRATIVE: CASE EVENT DATE: 20180706
